FAERS Safety Report 9448805 (Version 1)
Quarter: 2013Q3

REPORT INFORMATION
  Report Type: Spontaneous
  Country: FR (occurrence: FR)
  Receive Date: 20130808
  Receipt Date: 20130808
  Transmission Date: 20140515
  Serious: Yes (Death, Hospitalization)
  Sender: FDA-Public Use
  Company Number: FR-UCBSA-093740

PATIENT
  Age: 87 Year
  Sex: Male

DRUGS (10)
  1. KEPPRA [Suspect]
     Indication: EPILEPSY
     Route: 048
     Dates: start: 201305
  2. KEPPRA [Suspect]
     Indication: EPILEPSY
     Route: 048
     Dates: start: 201304, end: 2013
  3. ROCEPHINE [Suspect]
     Indication: PNEUMONIA
     Route: 042
     Dates: start: 20130619, end: 20130621
  4. ALLOPURINOL [Concomitant]
  5. AVODART [Concomitant]
  6. COVERSYL [Concomitant]
  7. DAFALGAN [Concomitant]
  8. PRADAXA [Concomitant]
  9. TAZOCILLINE [Concomitant]
  10. ZELITREX [Concomitant]

REACTIONS (2)
  - Agranulocytosis [Fatal]
  - Pneumonia [Unknown]
